FAERS Safety Report 6164841-5 (Version None)
Quarter: 2009Q2

REPORT INFORMATION
  Report Type: 
  Country: None (occurrence: None)
  Receive Date: 20090423
  Receipt Date: 20090415
  Transmission Date: 20091009
  Serious: Yes (Hospitalization)
  Sender: FDA-Public Use
  Company Number: PHHY2009TH14183

PATIENT
  Age: 47 Year
  Sex: Female

DRUGS (2)
  1. DESFERRIOXAMINE MESYLATE [Suspect]
     Indication: IRON OVERLOAD
     Dosage: 1500 MG, BIW
  2. DESFERRIOXAMINE MESYLATE [Suspect]
     Indication: APLASIA PURE RED CELL

REACTIONS (15)
  - AEROMONA INFECTION [None]
  - BACTERIAL SEPSIS [None]
  - BLOOD CREATINE PHOSPHOKINASE INCREASED [None]
  - HAEMODIALYSIS [None]
  - HYPERKALAEMIA [None]
  - INJURY [None]
  - MOVEMENT DISORDER [None]
  - MYALGIA [None]
  - OEDEMA PERIPHERAL [None]
  - PYREXIA [None]
  - RASH PUSTULAR [None]
  - RHABDOMYOLYSIS [None]
  - SEPTIC EMBOLUS [None]
  - WHITE BLOOD CELL COUNT INCREASED [None]
  - WOUND COMPLICATION [None]
